FAERS Safety Report 21301463 (Version 1)
Quarter: 2022Q3

REPORT INFORMATION
  Report Type: Spontaneous
  Country: JP (occurrence: JP)
  Receive Date: 20220907
  Receipt Date: 20220907
  Transmission Date: 20221027
  Serious: Yes (Life-Threatening, Hospitalization)
  Sender: FDA-Public Use
  Company Number: JP-STRIDES ARCOLAB LIMITED-2022SP011210

PATIENT
  Age: 84 Year
  Sex: Male

DRUGS (12)
  1. FUROSEMIDE [Interacting]
     Active Substance: FUROSEMIDE
     Indication: Diuretic therapy
     Dosage: 20 MILLIGRAM/DAY
     Route: 065
  2. CEFTRIAXONE [Interacting]
     Active Substance: CEFTRIAXONE
     Indication: Pneumonia
     Dosage: 2 GRAM EVERY 24 HOURS
     Route: 042
  3. CEFTRIAXONE [Interacting]
     Active Substance: CEFTRIAXONE
     Indication: Pyelonephritis
  4. AZOSEMIDE [Interacting]
     Active Substance: AZOSEMIDE
     Indication: Diuretic therapy
     Dosage: 30 MILLIGRAM
     Route: 065
  5. TAMSULOSIN [Concomitant]
     Active Substance: TAMSULOSIN
     Indication: Drug therapy
     Dosage: 0.2 MILLIGRAM/DAY
     Route: 065
  6. NIFEDIPINE [Concomitant]
     Active Substance: NIFEDIPINE
     Indication: Drug therapy
     Dosage: 20 MILLIGRAM/DAY
     Route: 065
  7. REBAMIPIDE [Concomitant]
     Active Substance: REBAMIPIDE
     Indication: Drug therapy
     Dosage: 200 MILLIGRAM/DAY
     Route: 065
  8. CILNIDIPINE [Concomitant]
     Active Substance: CILNIDIPINE
     Indication: Drug therapy
     Dosage: 20 MILLIGRAM/DAY
     Route: 065
  9. CARVEDILOL [Concomitant]
     Active Substance: CARVEDILOL
     Indication: Drug therapy
     Dosage: 10 MILLIGRAM/DAY
     Route: 065
  10. METHYLDOPA [Concomitant]
     Active Substance: METHYLDOPA
     Indication: Drug therapy
     Dosage: 500 MILLIGRAM/DAY
     Route: 065
  11. TELMISARTAN [Concomitant]
     Active Substance: TELMISARTAN
     Indication: Drug therapy
     Dosage: 40 MILLIGRAM/DAY
     Route: 065
  12. RIVAROXABAN [Concomitant]
     Active Substance: RIVAROXABAN
     Indication: Drug therapy
     Dosage: 10 MILLIGRAM/DAY
     Route: 065

REACTIONS (2)
  - Toxic encephalopathy [Recovered/Resolved]
  - Drug interaction [Unknown]
